FAERS Safety Report 7559089-3 (Version None)
Quarter: 2011Q2

REPORT INFORMATION
  Report Type: 
  Country: None (occurrence: None)
  Receive Date: 20110621
  Receipt Date: 20110614
  Transmission Date: 20111010
  Serious: Yes (Life-Threatening, Hospitalization, Disabling, Other)
  Sender: FDA-Public Use
  Company Number: US-JNJFOC-20110508682

PATIENT
  Sex: Male

DRUGS (1)
  1. RISPERDAL [Suspect]
     Indication: BIPOLAR DISORDER
     Dosage: PRIOR TO  2007
     Route: 065
     Dates: start: 20030529, end: 20070130

REACTIONS (3)
  - TARDIVE DYSKINESIA [None]
  - SUICIDAL IDEATION [None]
  - CAROTID ARTERY DISEASE [None]
